FAERS Safety Report 15278826 (Version 1)
Quarter: 2018Q4

REPORT INFORMATION
  Report Type: Spontaneous
  Country: ES (occurrence: ES)
  Receive Date: 20180815
  Receipt Date: 20180815
  Transmission Date: 20190204
  Serious: Yes (Other)
  Sender: FDA-Public Use
  Company Number: ES-TEVA-2018-ES-940801

PATIENT
  Age: 40 Year
  Sex: Male
  Weight: 90 kg

DRUGS (2)
  1. LORAZEPAM CINFA 1 MG COMPRIMIDOS EFG, 50 COMPRIMIDOS [Concomitant]
     Indication: INITIAL INSOMNIA
     Dosage: 1 MILLIGRAM DAILY; 1 PILL BEFORE SLEEPING
     Route: 048
     Dates: start: 20180526
  2. CITALOPRAM RATIOPHARM 10 MG COMPRIMIDOS RECUBIERTOS CON PELICULA , 28 [Suspect]
     Active Substance: CITALOPRAM HYDROBROMIDE
     Indication: DEPRESSION
     Dosage: 5 MILLIGRAM DAILY;
     Route: 048
     Dates: start: 20180622

REACTIONS (1)
  - Rectal haemorrhage [Not Recovered/Not Resolved]

NARRATIVE: CASE EVENT DATE: 20180701
